FAERS Safety Report 19859440 (Version 1)
Quarter: 2021Q3

REPORT INFORMATION
  Report Type: Spontaneous
  Country: US (occurrence: US)
  Receive Date: 20210920
  Receipt Date: 20210920
  Transmission Date: 20211014
  Serious: Yes (Hospitalization, Disabling)
  Sender: FDA-Public Use
  Company Number: None

PATIENT
  Age: 46 Year
  Sex: Female
  Weight: 50.85 kg

DRUGS (6)
  1. HEME IRON [Concomitant]
  2. ZINC. [Concomitant]
     Active Substance: ZINC
  3. BOTOX [Suspect]
     Active Substance: ONABOTULINUMTOXINA
     Indication: SKIN COSMETIC PROCEDURE
     Dosage: ?          OTHER STRENGTH:48 UNITS OF BOTOX;?
     Route: 030
     Dates: start: 20210903, end: 20210903
  4. COENZYME Q10 [Concomitant]
     Active Substance: DIETARY SUPPLEMENT\UBIDECARENONE
  5. VITAMIN B, C, D [Concomitant]
  6. VITAMIN B COMPLEX [Concomitant]
     Active Substance: CYANOCOBALAMIN\DEXPANTHENOL\NIACINAMIDE\PYRIDOXINE HYDROCHLORIDE\RIBOFLAVIN 5^-PHOSPHATE SODIUM\THIAMINE HYDROCHLORIDE\VITAMIN B COMPLEX

REACTIONS (21)
  - Vertigo [None]
  - Hypoaesthesia [None]
  - Speech disorder [None]
  - Depressed level of consciousness [None]
  - Pollakiuria [None]
  - Photophobia [None]
  - Hyperacusis [None]
  - Asthenia [None]
  - Nausea [None]
  - Vomiting [None]
  - Confusional state [None]
  - Disorientation [None]
  - Vision blurred [None]
  - Muscle twitching [None]
  - Bruxism [None]
  - Headache [None]
  - Disturbance in attention [None]
  - Electric shock sensation [None]
  - Ear discomfort [None]
  - Visual impairment [None]
  - Dry eye [None]

NARRATIVE: CASE EVENT DATE: 20210905
